FAERS Safety Report 5625483-0 (Version None)
Quarter: 2008Q1

REPORT INFORMATION
  Report Type: 
  Country: None (occurrence: None)
  Receive Date: 20080207
  Receipt Date: 20080122
  Transmission Date: 20080703
  Serious: Yes (Other)
  Sender: FDA-Public Use
  Company Number: A0704862A

PATIENT
  Age: 50 Year
  Sex: Female

DRUGS (1)
  1. ASPIRIN [Suspect]
     Indication: PAIN
     Dosage: 500 MG/VARIABLE DOSE / ORAL
     Route: 048

REACTIONS (1)
  - HYPOGLYCAEMIA [None]
